FAERS Safety Report 8111600-X (Version None)
Quarter: 2012Q1

REPORT INFORMATION
  Report Type: 
  Country: None (occurrence: None)
  Receive Date: 20120203
  Receipt Date: 20120120
  Transmission Date: 20120608
  Serious: Yes (Other)
  Sender: FDA-Public Use
  Company Number: US-RANBAXY-2012US-52122

PATIENT
  Age: 21 Year
  Sex: Male

DRUGS (2)
  1. ZOLPIDEM TARTRATE [Suspect]
     Indication: INSOMNIA
     Dosage: 12.5 MG, AT BED TIME
     Route: 065
  2. ALCOHOL [Suspect]
     Indication: PRODUCT USED FOR UNKNOWN INDICATION
     Route: 048

REACTIONS (4)
  - SOMNAMBULISM [None]
  - BLOOD ALCOHOL ABNORMAL [None]
  - DYSARTHRIA [None]
  - AMNESIA [None]
